FAERS Safety Report 4376042-1 (Version None)
Quarter: 2004Q2

REPORT INFORMATION
  Report Type: 
  Country: None (occurrence: None)
  Receive Date: 20040609
  Receipt Date: 20040609
  Transmission Date: 20050107
  Serious: Yes (Hospitalization, Other)
  Sender: FDA-Public Use
  Company Number: None

PATIENT
  Sex: Male
  Weight: 74 kg

DRUGS (7)
  1. WARFARIN SODIUM [Suspect]
     Indication: DEEP VEIN THROMBOSIS
     Dosage: MWFS -0.5 MG TRS-5 MG
  2. CYCLOSPORINE [Concomitant]
  3. ATORAQUONE [Concomitant]
  4. NIFEDIPINE [Concomitant]
  5. METOPROLOL TARTRATE [Concomitant]
  6. SIROLIMUS [Concomitant]
  7. PRAVASTATIN [Concomitant]

REACTIONS (1)
  - DEEP VEIN THROMBOSIS [None]
